FAERS Safety Report 19794926 (Version 1)
Quarter: 2021Q3

REPORT INFORMATION
  Report Type: Spontaneous
  Country: SG (occurrence: SG)
  Receive Date: 20210907
  Receipt Date: 20210907
  Transmission Date: 20211014
  Serious: Yes (Death)
  Sender: FDA-Public Use
  Company Number: SG-ROCHE-2902486

PATIENT
  Age: 63 Year
  Sex: Male

DRUGS (1)
  1. AVASTIN [Suspect]
     Active Substance: BEVACIZUMAB
     Indication: COLORECTAL CANCER
     Route: 065

REACTIONS (3)
  - Gastrointestinal disorder [Fatal]
  - Drug ineffective [Unknown]
  - Hepatic function abnormal [Fatal]

NARRATIVE: CASE EVENT DATE: 20210708
